FAERS Safety Report 6525522-9 (Version None)
Quarter: 2009Q4

REPORT INFORMATION
  Report Type: 
  Country: None (occurrence: None)
  Receive Date: 20091214
  Receipt Date: 20090210
  Transmission Date: 20100525
  Serious: Yes (Other)
  Sender: FDA-Public Use
  Company Number: 614271

PATIENT
  Age: 51 Year
  Sex: Female

DRUGS (7)
  1. PEGASYS [Suspect]
     Indication: HEPATIC CIRRHOSIS
     Dosage: 180 UG
     Dates: start: 20080401
  2. PEGASYS [Suspect]
     Indication: HEPATITIS C
     Dosage: 180 UG
     Dates: start: 20080401
  3. COPEGUS [Suspect]
     Indication: HEPATIC CIRRHOSIS
     Dosage: 800 MG DAILY
     Dates: start: 20090208
  4. COPEGUS [Suspect]
     Indication: HEPATITIS C
     Dosage: 800 MG DAILY
     Dates: start: 20090208
  5. PROCRIT [Concomitant]
  6. HYDROCODONE BITARTRATE [Concomitant]
  7. ADVIL LIQUI-GELS [Concomitant]

REACTIONS (10)
  - CHILLS [None]
  - HYPERHIDROSIS [None]
  - INFLUENZA LIKE ILLNESS [None]
  - INJECTION SITE HAEMORRHAGE [None]
  - INJECTION SITE IRRITATION [None]
  - INJECTION SITE SWELLING [None]
  - MYALGIA [None]
  - PYREXIA [None]
  - WEIGHT DECREASED [None]
  - WHITE BLOOD CELL COUNT DECREASED [None]
